FAERS Safety Report 16996861 (Version 2)
Quarter: 2019Q4

REPORT INFORMATION
  Report Type: Report from Study
  Country: IT (occurrence: IT)
  Receive Date: 20191105
  Receipt Date: 20191114
  Transmission Date: 20200122
  Serious: Yes (Hospitalization)
  Sender: FDA-Public Use
  Company Number: IT-MYLANLABS-2019M1104529

PATIENT
  Age: 89 Year
  Sex: Female

DRUGS (1)
  1. ALLOPURINOL. [Suspect]
     Active Substance: ALLOPURINOL
     Indication: HYPERURICAEMIA
     Dosage: 1 DOSAGE FORM, QD
     Route: 048
     Dates: start: 20190313, end: 20190316

REACTIONS (5)
  - Toxic skin eruption [Unknown]
  - Skin exfoliation [Unknown]
  - Dermatitis exfoliative generalised [Unknown]
  - Dermatitis [Unknown]
  - Inflammation [Unknown]

NARRATIVE: CASE EVENT DATE: 20190316
